FAERS Safety Report 5497047-3 (Version None)
Quarter: 2007Q4

REPORT INFORMATION
  Report Type: 
  Country: None (occurrence: None)
  Receive Date: 20071025
  Receipt Date: 20071015
  Transmission Date: 20080405
  Serious: Yes (Other)
  Sender: FDA-Public Use
  Company Number: IR-ROCHE-525759

PATIENT
  Age: 27 Year
  Sex: Male

DRUGS (1)
  1. PEGASYS [Suspect]
     Dosage: FORM REPORTED AS PRE FILLED SYRINGE.
     Route: 065
     Dates: start: 20071001

REACTIONS (1)
  - EYE PAIN [None]
